FAERS Safety Report 10944288 (Version 1)
Quarter: 2015Q1

REPORT INFORMATION
  Report Type: Spontaneous
  Country: US (occurrence: US)
  Receive Date: 20150323
  Receipt Date: 20150323
  Transmission Date: 20150721
  Serious: No
  Sender: FDA-Public Use
  Company Number: US-BIOGENIDEC-2015BI021275

PATIENT
  Sex: Female

DRUGS (1)
  1. AVONEX [Suspect]
     Active Substance: INTERFERON BETA-1A
     Indication: MULTIPLE SCLEROSIS
     Route: 030
     Dates: start: 20000901

REACTIONS (5)
  - Sinus disorder [Recovered/Resolved]
  - Asthenia [Recovered/Resolved]
  - Migraine [Recovered/Resolved]
  - Influenza like illness [Recovered/Resolved]
  - Pharyngeal disorder [Recovered/Resolved]
